FAERS Safety Report 18982091 (Version 1)
Quarter: 2021Q1

REPORT INFORMATION
  Report Type: Spontaneous
  Country: DE (occurrence: DE)
  Receive Date: 20210308
  Receipt Date: 20210308
  Transmission Date: 20210420
  Serious: Yes (Life-Threatening, Other)
  Sender: FDA-Public Use
  Company Number: DE-ASTRAZENECA-2021A106837

PATIENT
  Sex: Female
  Weight: 52 kg

DRUGS (4)
  1. QUETIAPINE. [Suspect]
     Active Substance: QUETIAPINE
     Indication: DEPRESSION
     Dosage: 200.0MG UNKNOWN
     Route: 048
  2. QUETIAPINE. [Suspect]
     Active Substance: QUETIAPINE
     Indication: SUICIDAL IDEATION
     Dosage: 200.0MG UNKNOWN
     Route: 048
  3. ARIPIPRAZOL [Suspect]
     Active Substance: ARIPIPRAZOLE
     Indication: DEPRESSION
     Dosage: 30.0MG UNKNOWN
     Route: 048
  4. ARIPIPRAZOL [Suspect]
     Active Substance: ARIPIPRAZOLE
     Indication: SUICIDAL IDEATION
     Dosage: 30.0MG UNKNOWN
     Route: 048

REACTIONS (3)
  - Embolism [Not Recovered/Not Resolved]
  - Muscle spasms [Not Recovered/Not Resolved]
  - Hypotension [Not Recovered/Not Resolved]

NARRATIVE: CASE EVENT DATE: 20201012
